FAERS Safety Report 9713197 (Version 1)
Quarter: 2013Q4

REPORT INFORMATION
  Report Type: Spontaneous
  Country: AT (occurrence: AT)
  Receive Date: 20131126
  Receipt Date: 20131126
  Transmission Date: 20140711
  Serious: Yes (Hospitalization, Other)
  Sender: FDA-Public Use
  Company Number: AT-TEVA-445823ISR

PATIENT
  Age: 94 Year
  Sex: Female

DRUGS (3)
  1. ENTEROBENE 2 MG FILMTABLETTEN [Suspect]
     Indication: DIARRHOEA
     Dates: start: 201307
  2. COLIDIMIN [Suspect]
     Indication: DIARRHOEA
     Dates: start: 201307
  3. ANAEROBEX [Concomitant]
     Indication: DIARRHOEA

REACTIONS (2)
  - Local swelling [Unknown]
  - Urinary retention [Unknown]
